FAERS Safety Report 16472152 (Version 1)
Quarter: 2019Q2

REPORT INFORMATION
  Report Type: Spontaneous
  Country: US (occurrence: US)
  Receive Date: 20190625
  Receipt Date: 20190625
  Transmission Date: 20190711
  Serious: No
  Sender: FDA-Public Use
  Company Number: US-ELI_LILLY_AND_COMPANY-US201906009097

PATIENT
  Sex: Male

DRUGS (1)
  1. HUMALOG MIX75/25 [Suspect]
     Active Substance: INSULIN LISPRO
     Indication: TYPE 1 DIABETES MELLITUS
     Dosage: UNK, UNKNOWN
     Route: 058

REACTIONS (6)
  - Weight increased [Not Recovered/Not Resolved]
  - Overweight [Unknown]
  - Gait disturbance [Recovered/Resolved]
  - Blood cholesterol decreased [Unknown]
  - Blood glucose decreased [Unknown]
  - Intentional product misuse [Unknown]
